FAERS Safety Report 5056907-8 (Version None)
Quarter: 2006Q2

REPORT INFORMATION
  Report Type: 
  Country: None (occurrence: None)
  Receive Date: 20060622
  Receipt Date: 20051025
  Transmission Date: 20061013
  Serious: Yes (Other)
  Sender: FDA-Public Use
  Company Number: US-JNJFOC-20051005942

PATIENT
  Age: 57 Year
  Sex: Male
  Weight: 103.8737 kg

DRUGS (20)
  1. DURAGESIC-100 [Suspect]
     Indication: DRUG USE FOR UNKNOWN INDICATION
     Dosage: SEE IMAGE
     Route: 062
     Dates: start: 20050501, end: 20050727
  2. DURAGESIC-100 [Suspect]
     Indication: DRUG USE FOR UNKNOWN INDICATION
     Dosage: SEE IMAGE
     Route: 062
     Dates: start: 20050728
  3. PD-325,901 (ANTINEOPLASTIC AGENTS) [Suspect]
     Indication: METASTATIC MALIGNANT MELANOMA
     Dosage: 20 MG, 1 IN 1 DAY, ORAL
     Route: 048
     Dates: start: 20050607, end: 20050802
  4. FUROSEMIDE [Concomitant]
  5. K-DUR 10 [Concomitant]
  6. PREVACID [Concomitant]
  7. MINOCYCLINE HCL [Concomitant]
  8. MOTRIN [Concomitant]
  9. MILK OF MAGNESIA TAB [Concomitant]
  10. PAXIL [Concomitant]
  11. LIPITOR [Concomitant]
  12. PERCOCET [Concomitant]
  13. LIDOCAINE [Concomitant]
  14. ONDANSETRON [Concomitant]
  15. DECADRON [Concomitant]
  16. LACTULOSE [Concomitant]
  17. ANUSOL (ANUSOL) [Concomitant]
  18. PROCHLORPERAZINE MALEATE [Concomitant]
  19. KYTRIL [Concomitant]
  20. NEURONTIN [Concomitant]

REACTIONS (8)
  - CONFUSIONAL STATE [None]
  - DIZZINESS [None]
  - DYSURIA [None]
  - HAEMATOCHEZIA [None]
  - HYPOALBUMINAEMIA [None]
  - OEDEMA [None]
  - RASH [None]
  - ROAD TRAFFIC ACCIDENT [None]
